FAERS Safety Report 8522510-8 (Version None)
Quarter: 2012Q3

REPORT INFORMATION
  Report Type: 
  Country: None (occurrence: None)
  Receive Date: 20120719
  Receipt Date: 20120712
  Transmission Date: 20120928
  Serious: Yes (Hospitalization, Other)
  Sender: FDA-Public Use
  Company Number: GB-UCBSA-061701

PATIENT
  Age: 73 Year
  Sex: Male
  Weight: 65.8 kg

DRUGS (4)
  1. METHOTREXATE [Concomitant]
  2. CIMZIA [Suspect]
     Route: 058
     Dates: start: 20110922, end: 20111121
  3. FOLIC ACID [Concomitant]
  4. PREDNISOLONE [Concomitant]

REACTIONS (1)
  - PNEUMONITIS [None]
